FAERS Safety Report 12386279 (Version 2)
Quarter: 2016Q2

REPORT INFORMATION
  Report Type: Spontaneous
  Country: US (occurrence: US)
  Receive Date: 20160519
  Receipt Date: 20160615
  Transmission Date: 20160815
  Serious: Yes (Hospitalization)
  Sender: FDA-Public Use
  Company Number: US-SA-2016SA095422

PATIENT
  Age: 25 Year
  Sex: Female

DRUGS (1)
  1. APIDRA [Suspect]
     Active Substance: INSULIN GLULISINE
     Indication: TYPE 1 DIABETES MELLITUS
     Dosage: FORM:INSULIN PUMP
     Route: 065
     Dates: start: 20160509, end: 20160512

REACTIONS (1)
  - Diabetic ketoacidosis [Recovering/Resolving]
